FAERS Safety Report 12350927 (Version 2)
Quarter: 2016Q2

REPORT INFORMATION
  Report Type: Spontaneous
  Country: US (occurrence: US)
  Receive Date: 20160510
  Receipt Date: 20160511
  Transmission Date: 20160815
  Serious: No
  Sender: FDA-Public Use
  Company Number: US-BAYER-2016-085240

PATIENT
  Age: 80 Year
  Sex: Female
  Weight: 65.76 kg

DRUGS (3)
  1. LASIKAL [Concomitant]
  2. ATACAND [CANDESARTAN CILEXETIL,HYDROCHLOROTHIAZIDE] [Concomitant]
  3. CLARITIN-D 24 HOUR [Suspect]
     Active Substance: LORATADINE\PSEUDOEPHEDRINE SULFATE
     Indication: RHINORRHOEA
     Dosage: 1 DF, QD
     Route: 048
     Dates: start: 20160429, end: 20160430

REACTIONS (6)
  - Pruritus [Recovered/Resolved]
  - Insomnia [Recovered/Resolved]
  - Pruritus [Recovered/Resolved]
  - Insomnia [Recovered/Resolved]
  - Pruritus [None]
  - Insomnia [None]

NARRATIVE: CASE EVENT DATE: 20160429
